FAERS Safety Report 10584485 (Version 1)
Quarter: 2014Q4

REPORT INFORMATION
  Report Type: Spontaneous
  Country: US (occurrence: None)
  Receive Date: 20141113
  Receipt Date: 20141113
  Transmission Date: 20150529
  Serious: Yes (Other)
  Sender: FDA-Public Use
  Company Number: None

PATIENT
  Age: 26 Year
  Sex: Female
  Weight: 56.25 kg

DRUGS (1)
  1. MIRVASO [Suspect]
     Active Substance: BRIMONIDINE TARTRATE
     Indication: ROSACEA
     Dosage: 1X/DAY ONCE DAILY APPLIED TO A SURFACE, USUALLY THE SKIN
     Route: 061
     Dates: start: 20141101, end: 20141103

REACTIONS (7)
  - Erythema [None]
  - Swelling face [None]
  - Blister [None]
  - Skin irritation [None]
  - Staphylococcal infection [None]
  - Blister infected [None]
  - Pruritus [None]

NARRATIVE: CASE EVENT DATE: 20141104
